FAERS Safety Report 7257646-5 (Version None)
Quarter: 2011Q1

REPORT INFORMATION
  Report Type: 
  Country: None (occurrence: None)
  Receive Date: 20110129
  Receipt Date: 20100519
  Transmission Date: 20110831
  Serious: No
  Sender: FDA-Public Use
  Company Number: PR-ABBOTT-10P-163-0646795-00

PATIENT
  Sex: Female
  Weight: 45.4 kg

DRUGS (3)
  1. HUMIRA [Suspect]
     Indication: CROHN'S DISEASE
     Route: 058
     Dates: start: 20100317
  2. PREVACID [Concomitant]
     Indication: PRODUCT USED FOR UNKNOWN INDICATION
  3. DIOVAN [Concomitant]
     Indication: BLOOD PRESSURE INCREASED
     Dates: start: 20100301

REACTIONS (4)
  - METRORRHAGIA [None]
  - BLOOD PRESSURE INCREASED [None]
  - FEELING ABNORMAL [None]
  - MENORRHAGIA [None]
